FAERS Safety Report 24769295 (Version 1)
Quarter: 2024Q4

REPORT INFORMATION
  Report Type: Spontaneous
  Country: GB (occurrence: GB)
  Receive Date: 20241224
  Receipt Date: 20241224
  Transmission Date: 20250114
  Serious: Yes (Other)
  Sender: TEVA
  Company Number: None

PATIENT
  Age: 80 Year

DRUGS (20)
  1. DOXYCYCLINE [Suspect]
     Active Substance: DOXYCYCLINE
     Indication: Product used for unknown indication
     Route: 065
  2. ALBUTEROL [Concomitant]
     Active Substance: ALBUTEROL
     Indication: Product used for unknown indication
     Dosage: 2.5 MG / 2.5 ML NEBULISER LIQUID UNIT DOSE VIALS ?ONE DOSE TO BE INHALED FOUR TIMES A DAY WHEN RE...
     Route: 045
  3. ALBUTEROL [Concomitant]
     Active Substance: ALBUTEROL
     Indication: Product used for unknown indication
     Dosage: 100 MICROGRAMS / DOSE INHALER CFC FREE?TWO PUFFS TO BE INHALED WHEN?REQUIRED FOR BREATHLESSNESS
     Route: 055
  4. POLYETHYLENE GLYCOL 3350\POTASSIUM CHLORIDE\SODIUM BICARBONATE\SODIUM [Concomitant]
     Active Substance: POLYETHYLENE GLYCOL 3350\POTASSIUM CHLORIDE\SODIUM BICARBONATE\SODIUM CHLORIDE
     Indication: Product used for unknown indication
     Dosage: TAKE ONE SACHET TWICE A DAY WHEN REQUIRED FOR?CONSTIPATION. PLAIN ORAL POWDER SACHETS
     Route: 048
  5. MIRTAZAPINE [Concomitant]
     Active Substance: MIRTAZAPINE
     Indication: Product used for unknown indication
     Dosage: ONE TO BE TAKEN AT NIGHT., DAILY DOSE: 1 DOSAGE FORM DAILY
     Route: 065
  6. MORPHINE SULFATE [Concomitant]
     Active Substance: MORPHINE SULFATE
     Indication: Product used for unknown indication
     Dosage: ( 2.5 MG-5 MG) WHEN REQUIRED EVERY 4 HOURS, 10 MG / 5 ML ORAL SOLUTION 1.25 MLS-2.5 MLS
     Route: 048
  7. AMLODIPINE [Concomitant]
     Active Substance: AMLODIPINE BESYLATE
     Indication: Product used for unknown indication
     Dosage: ONE TO BE TAKEN EACH DAY., DAILY DOSE: 5 MG DAILY
     Route: 065
  8. IPRATROPIUM BROMIDE [Concomitant]
     Active Substance: IPRATROPIUM BROMIDE
     Indication: Product used for unknown indication
     Dosage: ONE TO BE USED IN THE NEBULISER EVERY 4-6 HOURS AS NECESSARY, 500 MICROGRAMS / 2 ML NEBULISER LIQ...
     Route: 065
  9. AZITHROMYCIN [Concomitant]
     Active Substance: AZITHROMYCIN
     Indication: Product used for unknown indication
     Dosage: TAKE ONE TABLET THREE TIMES A WEEK (MONDAY / WEDNESDAY?/ FRIDAY). - SUSPENDED - INCREASED
     Route: 065
  10. PREDNISOLONE [Concomitant]
     Active Substance: PREDNISOLONE
     Indication: Product used for unknown indication
     Dosage: SIX TABLETS DAILY FOR 3 DAYS, THEN REDUCE BY 1 TABLET EVERY 3?DAYS UNTIL FINISHED 90 TABLET
     Route: 065
  11. ACETYLCYSTEINE [Concomitant]
     Active Substance: ACETYLCYSTEINE
     Indication: Product used for unknown indication
     Dosage: ONE TO BE TAKEN DAILY IN THE MORNING, 600 MG EFFERVESCENT TABLETS SUGAR FREE
     Route: 065
  12. LANSOPRAZOLE [Concomitant]
     Active Substance: LANSOPRAZOLE
     Indication: Product used for unknown indication
     Dosage: ONE TO BE TAKEN EARLY MORNING FOR GASTROINTESTINAL (GI) PROTECTION WHILE ON PREDNISOLONE, THEN ST...
     Route: 065
  13. BECLOMETHASONE DIPROPIONATE\FORMOTEROL FUMARATE\GLYCOPYRROLATE [Concomitant]
     Active Substance: BECLOMETHASONE DIPROPIONATE\FORMOTEROL FUMARATE\GLYCOPYRROLATE
     Indication: Product used for unknown indication
     Dosage: TWO PUFFS TO BE INHALED TWICE A DAY, 172 / 5 / 9 MICROGRAMS / DOSE INHALER
     Route: 055
  14. AMIODARONE [Concomitant]
     Active Substance: AMIODARONE
     Indication: Product used for unknown indication
     Dosage: ONE TO BE TAKEN EACH DAY, DAILY DOSE: 1 DOSAGE FORM DAILY
     Route: 065
  15. BISOPROLOL [Concomitant]
     Active Substance: BISOPROLOL
     Indication: Product used for unknown indication
     Dosage: ONE TO BE TAKEN EACH DAY., DAILY DOSE:5MG DAILY
     Route: 065
  16. EDOXABAN [Concomitant]
     Active Substance: EDOXABAN
     Indication: Product used for unknown indication
     Dosage: ONE TO BE TAKEN EACH DAY, DAILY DOSE: 60 MG DAILY
     Route: 065
  17. LORAZEPAM [Concomitant]
     Active Substance: LORAZEPAM
     Indication: Dyspnoea
     Dosage: HALF A TABLET [ 0.5 MG] TO BE TAKEN UP TO FOUR TIMES A DAY?WHEN REQUIRED FOR BREATHLESSNESS
     Route: 065
  18. MINERAL OIL\PARAFFIN [Concomitant]
     Active Substance: MINERAL OIL\PARAFFIN
     Indication: Product used for unknown indication
     Dosage: APPLY MORNING AND NIGHT, ORIGINAL CREAM, DAILY DOSE: 2 DOSAGE FORM DAILY
     Route: 065
  19. SENNA [Concomitant]
     Active Substance: SENNA LEAF\SENNOSIDES\SENNOSIDES A AND B
     Indication: Product used for unknown indication
     Dosage: TWO TO BE TAKEN AT NIGHT WHEN REQUIRED FOR CONSTIPATION ESPECIALLY?WHILST ON MORPHINE.,
     Route: 065
  20. MORPHINE [Concomitant]
     Active Substance: MORPHINE
     Indication: Product used for unknown indication
     Dosage: ONE CAPSULE TO BE TAKEN EVERY 12 HOURS.
     Route: 065

REACTIONS (1)
  - Photosensitivity reaction [Unknown]
